FAERS Safety Report 20598950 (Version 2)
Quarter: 2022Q1

REPORT INFORMATION
  Report Type: Spontaneous
  Country: US (occurrence: None)
  Receive Date: 20220315
  Receipt Date: 20220316
  Transmission Date: 20220423
  Serious: No
  Sender: FDA-Public Use
  Company Number: US-ROCHE-2884887

PATIENT
  Sex: Male

DRUGS (4)
  1. XOLAIR [Suspect]
     Active Substance: OMALIZUMAB
     Indication: Chronic obstructive pulmonary disease
     Route: 058
     Dates: start: 202002
  2. XOLAIR [Suspect]
     Active Substance: OMALIZUMAB
     Indication: Pulmonary fibrosis
  3. XOLAIR [Suspect]
     Active Substance: OMALIZUMAB
     Indication: Chronic respiratory failure
  4. XOLAIR [Suspect]
     Active Substance: OMALIZUMAB
     Indication: Hypercapnia

REACTIONS (5)
  - Myalgia [Unknown]
  - Bone pain [Unknown]
  - Productive cough [Unknown]
  - Off label use [Unknown]
  - Headache [Unknown]
